FAERS Safety Report 9754512 (Version 2)
Quarter: 2013Q4

REPORT INFORMATION
  Report Type: Spontaneous
  Country: US (occurrence: US)
  Receive Date: 20131213
  Receipt Date: 20131213
  Transmission Date: 20140711
  Serious: Yes (Death)
  Sender: FDA-Public Use
  Company Number: US-GE HEALTHCARE MEDICAL DIAGNOSTICS-OSCN-PR-0710S-0393

PATIENT
  Age: 18 Year
  Sex: Male

DRUGS (6)
  1. OMNISCAN [Suspect]
     Indication: BRAIN MASS
     Dates: start: 20050115, end: 20050115
  2. OMNISCAN [Suspect]
     Indication: PAIN
     Dates: start: 20050519, end: 20050519
  3. OMNISCAN [Suspect]
     Indication: INFLAMMATION
     Dates: start: 20050712, end: 20050712
  4. OMNISCAN [Suspect]
     Dates: start: 20050719, end: 20050719
  5. CYTOXAN [Concomitant]
  6. STEROIDS [Concomitant]

REACTIONS (1)
  - Nephrogenic systemic fibrosis [Fatal]
